FAERS Safety Report 7448702-7 (Version None)
Quarter: 2011Q2

REPORT INFORMATION
  Report Type: 
  Country: None (occurrence: None)
  Receive Date: 20110429
  Receipt Date: 20100716
  Transmission Date: 20111010
  Serious: No
  Sender: FDA-Public Use
  Company Number: US-ASTRAZENECA-2010SE33167

PATIENT
  Age: 63 Year
  Sex: Male
  Weight: 102.1 kg

DRUGS (6)
  1. SELEGILINE [Concomitant]
     Indication: PARKINSON'S DISEASE
  2. STALEVO 100 [Concomitant]
  3. ASPIRIN [Concomitant]
  4. OXYBUTYNIN CHLORIDE [Concomitant]
     Indication: BLADDER DILATATION
  5. AMANTADINE HCL [Concomitant]
     Indication: PARKINSON'S DISEASE
  6. NEXIUM [Suspect]
     Indication: GASTROOESOPHAGEAL REFLUX DISEASE
     Route: 048
     Dates: start: 20100715

REACTIONS (1)
  - JOINT SWELLING [None]
